FAERS Safety Report 9192554 (Version 1)
Quarter: 2013Q1

REPORT INFORMATION
  Report Type: Spontaneous
  Country: IT (occurrence: None)
  Receive Date: 20130325
  Receipt Date: 20130325
  Transmission Date: 20140127
  Serious: Yes (Hospitalization)
  Sender: FDA-Public Use
  Company Number: AUR-APL-2013-02541

PATIENT
  Age: 58 Year
  Sex: Female

DRUGS (7)
  1. CITALOPRAM [Suspect]
     Indication: BIPOLAR DISORDER
     Route: 048
     Dates: start: 20121211, end: 20121211
  2. CITALOPRAM [Suspect]
     Indication: BIPOLAR DISORDER
     Route: 048
     Dates: start: 20121211, end: 20121211
  3. CITALOPRAM [Suspect]
     Indication: BIPOLAR DISORDER
     Route: 048
     Dates: start: 20121211, end: 20121211
  4. CITALOPRAM [Suspect]
     Indication: BIPOLAR DISORDER
     Route: 048
     Dates: start: 20121211, end: 20121211
  5. SEROQUEL (QUETIAPINE FUMARATE) [Suspect]
  6. SAMYR [Suspect]
  7. XANAX [Suspect]

REACTIONS (11)
  - Loss of consciousness [None]
  - Suicide attempt [None]
  - Somnolence [None]
  - Disturbance in attention [None]
  - Fatigue [None]
  - Dysarthria [None]
  - Dysarthria [None]
  - Logorrhoea [None]
  - Agitation [None]
  - Drug abuse [None]
  - Laceration [None]
